FAERS Safety Report 7512282-8 (Version None)
Quarter: 2011Q2

REPORT INFORMATION
  Report Type: 
  Country: None (occurrence: None)
  Receive Date: 20110531
  Receipt Date: 20110516
  Transmission Date: 20111010
  Serious: Yes (Hospitalization, Other)
  Sender: FDA-Public Use
  Company Number: PHHY2011US42728

PATIENT
  Age: 57 Year
  Sex: Female

DRUGS (5)
  1. BISPHOSPHONATES [Suspect]
  2. ZOMETA [Suspect]
     Indication: BREAST CANCER METASTATIC
     Dosage: EVERY OTHER MONTH
  3. ZOMETA [Suspect]
     Dosage: EVERY SIX MONTHS
  4. ZOMETA [Suspect]
     Dosage: EVERY THREE MONTHS
     Dates: start: 20081201
  5. PAMIDRONATE DISODIUM [Concomitant]

REACTIONS (8)
  - ARTHRALGIA [None]
  - PAIN [None]
  - SPINAL COMPRESSION FRACTURE [None]
  - STRESS FRACTURE [None]
  - OSTEOPOROSIS [None]
  - FALL [None]
  - RIB FRACTURE [None]
  - NEOPLASM MALIGNANT [None]
